FAERS Safety Report 6810403-3 (Version None)
Quarter: 2010Q2

REPORT INFORMATION
  Report Type: 
  Country: None (occurrence: None)
  Receive Date: 20100630
  Receipt Date: 20100616
  Transmission Date: 20101027
  Serious: Yes (Hospitalization)
  Sender: FDA-Public Use
  Company Number: PHHY2010US36257

PATIENT
  Sex: Male

DRUGS (14)
  1. GLEEVEC [Suspect]
     Indication: ACUTE LYMPHOCYTIC LEUKAEMIA
     Dosage: 400 MG PER DAY
     Route: 048
  2. GLEEVEC [Suspect]
     Dosage: 600 MG PER DAY
  3. CYTOXAN [Concomitant]
     Route: 042
  4. VINCRISTINE [Concomitant]
     Route: 042
  5. DOXORUBICIN [Concomitant]
     Route: 042
  6. DECADRON [Concomitant]
     Route: 042
  7. MEGACE [Concomitant]
     Dosage: 400 MG, BID
  8. POTASSIUM CHLORIDE [Concomitant]
     Dosage: 20 MEQ, BID
  9. CALCIUM CARBONATE [Concomitant]
     Dosage: 500 MG, BID
  10. PROTONIX [Concomitant]
     Dosage: 40 MG DAILY
  11. METOPROLOL [Concomitant]
     Dosage: 50 MG DAILY
  12. LOTENSIN [Concomitant]
     Dosage: 20 MG DAILY
  13. HYDROCHLOROTHIAZIDE [Concomitant]
     Dosage: 25 MG DAILY
  14. COMPAZINE [Concomitant]
     Indication: NAUSEA
     Dosage: 10 MG EVERY 6 HOURS, AS NECESSARY

REACTIONS (14)
  - ACUTE LYMPHOCYTIC LEUKAEMIA RECURRENT [None]
  - ALOPECIA [None]
  - CLOSTRIDIUM DIFFICILE COLITIS [None]
  - DISCOMFORT [None]
  - DISSEMINATED INTRAVASCULAR COAGULATION [None]
  - HERPES ZOSTER [None]
  - KLEBSIELLA BACTERAEMIA [None]
  - NAUSEA [None]
  - NEUTROPENIA [None]
  - PANCYTOPENIA [None]
  - PYREXIA [None]
  - RASH ERYTHEMATOUS [None]
  - SUBDURAL HAEMATOMA [None]
  - VOMITING [None]
